FAERS Safety Report 19521496 (Version 3)
Quarter: 2021Q3

REPORT INFORMATION
  Report Type: Spontaneous
  Country: DE (occurrence: DE)
  Receive Date: 20210712
  Receipt Date: 20210903
  Transmission Date: 20211014
  Serious: Yes (Other)
  Sender: FDA-Public Use
  Company Number: NVSC2021DE148442

PATIENT
  Sex: Female

DRUGS (1)
  1. BEOVU [Suspect]
     Active Substance: BROLUCIZUMAB-DBLL
     Indication: NEOVASCULAR AGE-RELATED MACULAR DEGENERATION
     Dosage: UNK, ONCE/SINGLE
     Route: 031
     Dates: start: 20210609, end: 20210609

REACTIONS (6)
  - Vision blurred [Unknown]
  - Anterior chamber disorder [Recovered/Resolved]
  - Vitritis [Recovered/Resolved]
  - Vitreous floaters [Unknown]
  - Non-infectious endophthalmitis [Recovered/Resolved]
  - Anterior chamber cell [Unknown]

NARRATIVE: CASE EVENT DATE: 20210624
